FAERS Safety Report 5749927-9 (Version None)
Quarter: 2008Q2

REPORT INFORMATION
  Report Type: 
  Country: None (occurrence: None)
  Receive Date: 20080527
  Receipt Date: 20080520
  Transmission Date: 20081010
  Serious: Yes (Hospitalization)
  Sender: FDA-Public Use
  Company Number: US-ELI_LILLY_AND_COMPANY-US200805004081

PATIENT
  Sex: Female

DRUGS (3)
  1. HUMULIN 70/30 [Suspect]
     Dates: start: 19880101
  2. LYRICA [Concomitant]
     Indication: NEUROPATHY PERIPHERAL
  3. GABAPENTIN [Concomitant]
     Indication: NEUROPATHY PERIPHERAL
     Dosage: UNK, 2/D

REACTIONS (2)
  - NEUROPATHY PERIPHERAL [None]
  - OVARIAN DISORDER [None]
